FAERS Safety Report 6718627-0 (Version None)
Quarter: 2010Q2

REPORT INFORMATION
  Report Type: 
  Country: None (occurrence: None)
  Receive Date: 20100505
  Receipt Date: 20100422
  Transmission Date: 20101027
  Serious: Yes (Hospitalization)
  Sender: FDA-Public Use
  Company Number: 167-20484-09111367

PATIENT
  Sex: Female
  Weight: 2 kg

DRUGS (12)
  1. INNOHEP [Suspect]
     Dosage: TRANSPLACENTAL
     Route: 064
     Dates: start: 20011009, end: 20020628
  2. ACETAMINOPHEN [Concomitant]
  3. SIMPLE LINCTUS (AMARANTH, CITRIC ACID MONOHYDRATE, SYRUP CHLOROFROM SP [Concomitant]
  4. PROSTAGLANDIN PGE2 [Concomitant]
  5. MEPERIDINE HCL [Concomitant]
  6. METOCLOPRAMIDE (METOCLOPRAMIDE) [Concomitant]
  7. MARCAINE [Concomitant]
  8. SODIUM CITRATE [Concomitant]
  9. EPHEDRINE SUL CAP [Concomitant]
  10. SYNTOCINON [Concomitant]
  11. AUGMENTIN (AMOXICILLIN SODIUM, CLACULANATE POTASSIUM) [Concomitant]
  12. MAGNESIUM TRISILICATE (MAGNESIUM TRISILICATE) [Concomitant]

REACTIONS (2)
  - MATERNAL DRUGS AFFECTING FOETUS [None]
  - SMALL FOR DATES BABY [None]
